FAERS Safety Report 9095595 (Version 1)
Quarter: 2013Q1

REPORT INFORMATION
  Report Type: Spontaneous
  Country: US (occurrence: US)
  Receive Date: 20130219
  Receipt Date: 20130219
  Transmission Date: 20140127
  Serious: Yes (Death)
  Sender: FDA-Public Use
  Company Number: US-FRI-1000042675

PATIENT
  Sex: Male

DRUGS (1)
  1. VIIBRYD [Suspect]

REACTIONS (2)
  - Death [Fatal]
  - Drug ineffective [Recovered/Resolved]
